FAERS Safety Report 4661071-0 (Version None)
Quarter: 2005Q2

REPORT INFORMATION
  Report Type: 
  Country: None (occurrence: None)
  Receive Date: 20050511
  Receipt Date: 20050425
  Transmission Date: 20051028
  Serious: No
  Sender: FDA-Public Use
  Company Number: 10970

PATIENT
  Age: 51 Year
  Sex: 0

DRUGS (4)
  1. PAMIDRONIC ACID [Suspect]
     Indication: METASTASIS
     Dosage: 90 MG MONTHYL, IV
     Route: 042
     Dates: start: 20020518, end: 20041220
  2. VENLAFAXINE HCL [Concomitant]
  3. TRAMADOL [Concomitant]
  4. LANSOPRAZOLE [Concomitant]

REACTIONS (3)
  - ASEPTIC NECROSIS BONE [None]
  - OSTEOMYELITIS [None]
  - OSTEONECROSIS [None]
